FAERS Safety Report 7304698-X (Version None)
Quarter: 2011Q1

REPORT INFORMATION
  Report Type: 
  Country: None (occurrence: None)
  Receive Date: 20110222
  Receipt Date: 20110215
  Transmission Date: 20110831
  Serious: No
  Sender: FDA-Public Use
  Company Number: US-PFIZER INC-2010167907

PATIENT
  Sex: Female
  Weight: 83.9 kg

DRUGS (2)
  1. PRISTIQ [Suspect]
     Indication: DEPRESSION
     Dosage: 50 MG, 1X/DAY
     Route: 048
     Dates: start: 20100510, end: 20101208
  2. PREMARIN [Concomitant]
     Indication: HORMONE REPLACEMENT THERAPY
     Dosage: UNK

REACTIONS (6)
  - ANGER [None]
  - TEARFULNESS [None]
  - HYPERHIDROSIS [None]
  - AGITATION [None]
  - AFFECT LABILITY [None]
  - INSOMNIA [None]
